FAERS Safety Report 11150908 (Version 1)
Quarter: 2015Q2

REPORT INFORMATION
  Report Type: Spontaneous
  Country: US (occurrence: US)
  Receive Date: 20150601
  Receipt Date: 20150601
  Transmission Date: 20150821
  Serious: Yes (Other)
  Sender: FDA-Public Use
  Company Number: US-BAYER-2015-280090

PATIENT
  Age: 17 Year
  Sex: Female

DRUGS (1)
  1. MIRENA [Suspect]
     Active Substance: LEVONORGESTREL
     Indication: CONTRACEPTION
     Dosage: 20 MCG/24HR, CONT
     Route: 015
     Dates: start: 20140527, end: 201503

REACTIONS (4)
  - Abortion spontaneous [None]
  - Uterine cervical erosion [None]
  - Maternal exposure before pregnancy [None]
  - Complication of device removal [None]

NARRATIVE: CASE EVENT DATE: 20140527
